FAERS Safety Report 6129969-4 (Version None)
Quarter: 2009Q1

REPORT INFORMATION
  Report Type: 
  Country: None (occurrence: None)
  Receive Date: 20090323
  Receipt Date: 20090323
  Transmission Date: 20090719
  Serious: Yes (Other)
  Sender: FDA-Public Use
  Company Number: None

PATIENT
  Age: 41 Year
  Sex: Female
  Weight: 64.4108 kg

DRUGS (2)
  1. IMURAN [Suspect]
     Indication: CROHN'S DISEASE
     Dosage: 150MG EVERY DAY PO
     Route: 048
     Dates: start: 20070701, end: 20090228
  2. ENTOCORT 3MG [Suspect]
     Indication: CROHN'S DISEASE
     Dosage: 9MG EVERY DAY PO
     Route: 048
     Dates: start: 20070701, end: 20080530

REACTIONS (2)
  - NEOPLASM MALIGNANT [None]
  - VIRILISM [None]
